FAERS Safety Report 5648803-X (Version None)
Quarter: 2008Q1

REPORT INFORMATION
  Report Type: 
  Country: None (occurrence: None)
  Receive Date: 20080131
  Receipt Date: 20071121
  Transmission Date: 20080703
  Serious: No
  Sender: FDA-Public Use
  Company Number: US200706000813

PATIENT
  Age: 68 Year
  Sex: Female
  Weight: 81.6 kg

DRUGS (4)
  1. BYETTA [Suspect]
     Indication: TYPE 2 DIABETES MELLITUS
     Dosage: 5 UG, 2/D, SUBCUTANEOUS; SUBCUTANEOUS
     Route: 057
     Dates: start: 20061024
  2. EXENATIDE PEN, DISPOSABLE DEVICE (EXENATIDE PEN) DISPOSABLE [Concomitant]
  3. GLUCOTROL [Concomitant]
  4. ACTOS [Concomitant]

REACTIONS (5)
  - BLOOD GLUCOSE DECREASED [None]
  - BLOOD GLUCOSE FLUCTUATION [None]
  - FEELING ABNORMAL [None]
  - VISION BLURRED [None]
  - WEIGHT DECREASED [None]
